FAERS Safety Report 4741388-1 (Version None)
Quarter: 2005Q3

REPORT INFORMATION
  Report Type: 
  Country: None (occurrence: None)
  Receive Date: 20050803
  Receipt Date: 20040729
  Transmission Date: 20060218
  Serious: Yes (Other)
  Sender: FDA-Public Use
  Company Number: 2004-07-1752

PATIENT
  Age: 49 Year
  Sex: Female

DRUGS (1)
  1. INTERFERON [Suspect]

REACTIONS (1)
  - TOOTH DISORDER [None]
